FAERS Safety Report 14604039 (Version 2)
Quarter: 2018Q1

REPORT INFORMATION
  Report Type: Spontaneous
  Country: BR (occurrence: BR)
  Receive Date: 20180306
  Receipt Date: 20180322
  Transmission Date: 20180509
  Serious: Yes (Other)
  Sender: FDA-Public Use
  Company Number: BR-PFIZER INC-2018088630

PATIENT
  Sex: Male

DRUGS (11)
  1. NIQUITIN [Suspect]
     Active Substance: NICOTINE
     Dosage: UNK
  2. RIVOTRIL [Concomitant]
     Active Substance: CLONAZEPAM
     Indication: ANXIETY
     Dosage: 2 MG, 2X/DAY (AT LUNCH AND BEFORE BEDTIME)
  3. CHAMPIX [Suspect]
     Active Substance: VARENICLINE TARTRATE
     Dosage: 1 MG, DAILY(ONE AT 11HRS AND ONE AT 23HRS)
  4. NIQUITIN [Suspect]
     Active Substance: NICOTINE
     Dosage: UNK
  5. TORLOS [Concomitant]
     Dosage: 25 MG, 2X/DAY (MORNING AND NIGHT)
  6. ZOLPIDEM [Concomitant]
     Active Substance: ZOLPIDEM\ZOLPIDEM TARTRATE
  7. CHAMPIX [Suspect]
     Active Substance: VARENICLINE TARTRATE
     Indication: SMOKING CESSATION THERAPY
     Dosage: 0.5 MG, DAILY
     Dates: start: 20180102
  8. SELOZOK [Concomitant]
     Active Substance: METOPROLOL SUCCINATE
     Dosage: 50 MG, UNK
  9. LIMBITROL /00033501/ [Concomitant]
     Dosage: 5 MG CHLORDIAZEPOXIDE HYDROCHLORIDE AND 12.5 MG AMITRIPTYLINE HYDROCHLORIDE, UNK
  10. NIQUITIN [Suspect]
     Active Substance: NICOTINE
     Dosage: UNK
  11. PANTOPRAZOLE [Concomitant]
     Active Substance: PANTOPRAZOLE
     Indication: PROPHYLAXIS AGAINST GASTROINTESTINAL ULCER
     Dosage: 40 MG, UNK

REACTIONS (6)
  - Drug effect incomplete [Not Recovered/Not Resolved]
  - Condition aggravated [Not Recovered/Not Resolved]
  - Tibia fracture [Not Recovered/Not Resolved]
  - Anxiety [Not Recovered/Not Resolved]
  - Irritability [Not Recovered/Not Resolved]
  - Drug dependence [Not Recovered/Not Resolved]

NARRATIVE: CASE EVENT DATE: 20180203
